FAERS Safety Report 10021544 (Version 1)
Quarter: 2014Q1

REPORT INFORMATION
  Report Type: Spontaneous
  Country: US (occurrence: None)
  Receive Date: 20140318
  Receipt Date: 20140318
  Transmission Date: 20141002
  Serious: Yes (Hospitalization)
  Sender: FDA-Public Use
  Company Number: None

PATIENT
  Age: 57 Year
  Sex: Female
  Weight: 68.04 kg

DRUGS (20)
  1. CLOZAPINE [Suspect]
     Indication: SCHIZOAFFECTIVE DISORDER BIPOLAR TYPE
     Route: 048
  2. HALOPERIDOL [Concomitant]
  3. BENZTROPINE [Concomitant]
  4. CLOZAPINE [Concomitant]
  5. DIPHENHYDRAMINE [Concomitant]
  6. GLYCOPYRROLATE [Concomitant]
  7. LITHIUM CITRATE [Concomitant]
  8. LORAZEPAM [Concomitant]
  9. MIRTAZAPINE [Concomitant]
  10. BISACODYL [Concomitant]
  11. CHOLECALCIFEROL [Concomitant]
  12. DOCUSATE SODIUM [Concomitant]
  13. LEVOTHYROXINE [Concomitant]
  14. POLYETHYLENE GLYCOL [Concomitant]
  15. PANTOPRAZOLE [Concomitant]
  16. RANITIDINE [Concomitant]
  17. SIMVASTATIN [Concomitant]
  18. FLEET ENEMA [Concomitant]
  19. BENGAY [Concomitant]
  20. BACITRACIN [Concomitant]

REACTIONS (2)
  - Abdominal distension [None]
  - Constipation [None]
